FAERS Safety Report 16566607 (Version 2)
Quarter: 2019Q4

REPORT INFORMATION
  Report Type: Spontaneous
  Country: ES (occurrence: ES)
  Receive Date: 20190712
  Receipt Date: 20191017
  Transmission Date: 20200122
  Serious: Yes (Death, Hospitalization, Disabling, Other)
  Sender: FDA-Public Use
  Company Number: ES-PFIZER INC-2019290931

PATIENT
  Age: 54 Year
  Sex: Male

DRUGS (9)
  1. CARBOPLATIN. [Suspect]
     Active Substance: CARBOPLATIN
     Indication: LUNG ADENOCARCINOMA
     Dosage: 1 UNK, CYCLIC (EVERY 21 DAYS)
     Route: 065
  2. PARACETAMOL/TRAMADOL [Concomitant]
     Dosage: 1 UNK, 3X/DAY (325/37.5MG (IF HE EXPRESSES, EVERY 8 HOURS)
     Route: 065
  3. NINTEDANIB [Suspect]
     Active Substance: NINTEDANIB
     Indication: LUNG ADENOCARCINOMA
     Dosage: UNK
     Route: 065
  4. ENALAPRIL/HYDROCHLOROTHIAZIDE [Concomitant]
     Dosage: 1 UNK, CYCLIC (20/12.5MG, EVERY 21 DAYS)
     Route: 065
  5. AVASTIN [Suspect]
     Active Substance: BEVACIZUMAB
     Indication: LUNG ADENOCARCINOMA
     Dosage: 7.5 MG/KG, CYCLIC (EVERY 21 DAYS)
     Dates: start: 20160424, end: 20170112
  6. DOCETAXEL. [Suspect]
     Active Substance: DOCETAXEL
     Indication: LUNG ADENOCARCINOMA
     Dosage: UNK
     Route: 065
  7. PACLITAXEL. [Suspect]
     Active Substance: PACLITAXEL
     Indication: LUNG ADENOCARCINOMA
     Dosage: 1 UNK, CYCLIC (EVERY 21 DAYS)
     Route: 065
  8. OMNIC [Concomitant]
     Active Substance: TAMSULOSIN HYDROCHLORIDE
     Indication: BENIGN PROSTATIC HYPERPLASIA
     Dosage: 0.4 UNK, UNK
     Route: 048
  9. NIVOLUMAB [Suspect]
     Active Substance: NIVOLUMAB
     Indication: LUNG ADENOCARCINOMA
     Dosage: UNK
     Route: 065

REACTIONS (12)
  - Alopecia [Recovered/Resolved]
  - Vomiting [Recovered/Resolved]
  - Malaise [Recovered/Resolved]
  - Asthenia [Not Recovered/Not Resolved]
  - Diarrhoea [Recovered/Resolved]
  - Neurotoxicity [Recovered/Resolved]
  - Neutropenia [Recovered/Resolved]
  - Abdominal pain upper [Unknown]
  - General physical health deterioration [Not Recovered/Not Resolved]
  - Neoplasm progression [Fatal]
  - Abdominal pain lower [Unknown]
  - Nephropathy toxic [Recovered/Resolved]

NARRATIVE: CASE EVENT DATE: 20170410
